FAERS Safety Report 9586524 (Version 2)
Quarter: 2013Q4

REPORT INFORMATION
  Report Type: Spontaneous
  Country: US (occurrence: US)
  Receive Date: 20131003
  Receipt Date: 20131111
  Transmission Date: 20140711
  Serious: Yes (Hospitalization, Other)
  Sender: FDA-Public Use
  Company Number: US-JNJFOC-20130913058

PATIENT
  Age: 85 Year
  Sex: Female

DRUGS (1)
  1. RISPERDAL CONSTA [Suspect]
     Indication: PRODUCT USED FOR UNKNOWN INDICATION
     Route: 030
     Dates: start: 2013, end: 2013

REACTIONS (9)
  - Investigation [Unknown]
  - Arthritis [Not Recovered/Not Resolved]
  - Unevaluable event [Recovered/Resolved]
  - Drug diversion [Unknown]
  - Feeling cold [Not Recovered/Not Resolved]
  - Irritability [Unknown]
  - Sedation [Recovered/Resolved]
  - Hypoaesthesia [Not Recovered/Not Resolved]
  - Oedema peripheral [Not Recovered/Not Resolved]
